FAERS Safety Report 20897922 (Version 2)
Quarter: 2022Q3

REPORT INFORMATION
  Report Type: Spontaneous
  Country: US (occurrence: US)
  Receive Date: 20220531
  Receipt Date: 20220714
  Transmission Date: 20221026
  Serious: No
  Sender: FDA-Public Use
  Company Number: US-PFIZER INC-202200771181

PATIENT
  Age: 85 Year
  Sex: Female
  Weight: 53.061 kg

DRUGS (19)
  1. PAXLOVID [Suspect]
     Active Substance: NIRMATRELVIR\RITONAVIR
     Indication: COVID-19 treatment
     Dosage: UNK
     Dates: start: 20220410, end: 20220415
  2. LISINOPRIL [Concomitant]
     Active Substance: LISINOPRIL
     Dosage: 20 MG, DAILY
  3. HYDROCHLOROTHIAZIDE [Concomitant]
     Active Substance: HYDROCHLOROTHIAZIDE
     Dosage: 25 MG, DAILY
  4. AMLODIPINE BESYLATE [Concomitant]
     Active Substance: AMLODIPINE BESYLATE
     Dosage: 5 MG, DAILY
  5. AMIODARONE HYDROCHLORIDE [Concomitant]
     Active Substance: AMIODARONE HYDROCHLORIDE
     Dosage: 200 MG, DAILY
  6. XARELTO [Concomitant]
     Active Substance: RIVAROXABAN
     Dosage: UNK
  7. LUCENTIS [Concomitant]
     Active Substance: RANIBIZUMAB
     Dosage: CYCLIC (INJECTION EVERY 6 WKS)
  8. LUCENTIS [Concomitant]
     Active Substance: RANIBIZUMAB
     Dosage: CYCLIC, (INJECTION EVERY 6 WKS IN EACH EYE)
     Route: 047
  9. CETIRIZINE HCL [Concomitant]
     Active Substance: CETIRIZINE HYDROCHLORIDE
     Dosage: 10 MG, DAILY
     Dates: start: 20220315
  10. FLUTICASONE PROPIONATE [Concomitant]
     Active Substance: FLUTICASONE PROPIONATE
     Dosage: UNK
     Route: 045
     Dates: start: 20220315
  11. VITAMIN D NOS [Concomitant]
     Active Substance: VITAMIN D NOS
     Dosage: 25 UG, DAILY
  12. IRON [Concomitant]
     Active Substance: IRON
     Dosage: 64 MG, DAILY
  13. LUTEIN [Concomitant]
     Active Substance: LUTEIN
     Dosage: 20 MG, DAILY
  14. CALCIUM [Concomitant]
     Active Substance: CALCIUM
     Dosage: UNK
  15. MAGNESIUM [Concomitant]
     Active Substance: MAGNESIUM
     Dosage: 400 MG
  16. ZINC [Concomitant]
     Active Substance: ZINC
     Dosage: 15 MG
  17. VITAMIN D3 [Concomitant]
     Active Substance: CHOLECALCIFEROL
     Dosage: 15 UG, DAILY
  18. PROLIA [Concomitant]
     Active Substance: DENOSUMAB
     Dosage: EVERY 6 MONTHS
     Dates: start: 20220112
  19. DEXAMYCIN [DEXAMETHASONE;TOBRAMYCIN] [Concomitant]
     Dosage: UNK (0.3.0.1 SUSPENSION)
     Dates: start: 20220419, end: 20220430

REACTIONS (2)
  - COVID-19 [Not Recovered/Not Resolved]
  - Disease recurrence [Not Recovered/Not Resolved]

NARRATIVE: CASE EVENT DATE: 20220421
